FAERS Safety Report 7180158-4 (Version None)
Quarter: 2010Q4

REPORT INFORMATION
  Report Type: 
  Country: None (occurrence: None)
  Receive Date: 20101221
  Receipt Date: 20101216
  Transmission Date: 20110411
  Serious: Yes (Other)
  Sender: FDA-Public Use
  Company Number: US-PFIZER INC-2010169519

PATIENT
  Sex: Female
  Weight: 58.95 kg

DRUGS (10)
  1. CHANTIX [Suspect]
     Indication: SMOKING CESSATION THERAPY
     Dosage: 0.5 MG, 1X/DAY
     Route: 048
     Dates: start: 20101210
  2. CHANTIX [Suspect]
     Dosage: UNK
     Route: 048
     Dates: start: 20101210
  3. METFORMIN [Concomitant]
     Dosage: 500 MG, 2X/DAY
  4. LISINOPRIL [Concomitant]
     Dosage: 10 MG, DAILY
  5. ACETYLSALICYLIC ACID [Concomitant]
     Dosage: UNK
  6. TRAMADOL [Concomitant]
     Dosage: 10 MG, UNK
  7. PLAVIX [Concomitant]
     Dosage: 10 MG, UNK
  8. PRAVASTATIN [Concomitant]
     Dosage: UNK
  9. AMOXICILLIN [Concomitant]
     Indication: SINUSITIS
     Dosage: 500 MG, UNK
  10. LOVAZA [Concomitant]
     Dosage: UNK

REACTIONS (2)
  - ERYTHEMA [None]
  - EYE PAIN [None]
